FAERS Safety Report 11145887 (Version 1)
Quarter: 2015Q2

REPORT INFORMATION
  Report Type: Report from Study
  Country: US (occurrence: US)
  Receive Date: 20150528
  Receipt Date: 20150528
  Transmission Date: 20150821
  Serious: Yes (Death, Other)
  Sender: FDA-Public Use
  Company Number: US-ASTELLAS-2015US016684

PATIENT
  Sex: Male

DRUGS (3)
  1. XELODA [Suspect]
     Active Substance: CAPECITABINE
     Indication: SQUAMOUS CELL CARCINOMA OF THE TONGUE
     Dosage: UNK, ONCE WEEKLY
     Route: 065
  2. ERLOTINIB [Suspect]
     Active Substance: ERLOTINIB
     Indication: SQUAMOUS CELL CARCINOMA OF THE TONGUE
     Route: 048
  3. CISPLATIN. [Suspect]
     Active Substance: CISPLATIN
     Indication: PRODUCT USED FOR UNKNOWN INDICATION
     Dosage: UNK UNK, UNKNOWN FREQ.
     Route: 065

REACTIONS (12)
  - Nausea [Unknown]
  - Off label use [Unknown]
  - Vomiting [Unknown]
  - Malignant neoplasm progression [Unknown]
  - Lymphoedema [Unknown]
  - Mass [Unknown]
  - Pain [Unknown]
  - Death [Fatal]
  - Insomnia [Unknown]
  - Oedema peripheral [Unknown]
  - Fatigue [Unknown]
  - Asthenia [Unknown]
